FAERS Safety Report 7073665-6 (Version None)
Quarter: 2010Q4

REPORT INFORMATION
  Report Type: 
  Country: None (occurrence: None)
  Receive Date: 20101029
  Receipt Date: 20100810
  Transmission Date: 20110411
  Serious: No
  Sender: FDA-Public Use
  Company Number: A0872542A

PATIENT
  Age: 50 Year
  Sex: Female

DRUGS (4)
  1. ADVAIR DISKUS 100/50 [Suspect]
     Indication: ASTHMA
     Dosage: 1PUFF PER DAY
     Route: 055
     Dates: start: 20100712, end: 20100713
  2. BONIVA [Concomitant]
  3. ASPIRIN [Concomitant]
  4. BENADRYL [Concomitant]

REACTIONS (8)
  - CHOKING SENSATION [None]
  - COUGH [None]
  - DYSPNOEA [None]
  - MUSCLE SPASMS [None]
  - OROPHARYNGEAL SPASM [None]
  - PALPITATIONS [None]
  - SENSATION OF FOREIGN BODY [None]
  - TINNITUS [None]
